FAERS Safety Report 7789857 (Version 2)
Quarter: 2013Q1

REPORT INFORMATION
  Report Type: Spontaneous
  Country: US (occurrence: None)
  Receive Date: 20101220
  Receipt Date: 20121219
  Transmission Date: 20140127
  Serious: Yes (Disabling, Other)
  Sender: FDA-Public Use
  Company Number: 2010US004872

PATIENT
  Age: 67 Year
  Sex: Female

DRUGS (8)
  1. VESICARE [Suspect]
     Indication: PRODUCT USED FOR UNKNOWN INDICATION
     Dosage: ORAL
     Route: 048
     Dates: start: 20101118, end: 20101124
  2. ALPRAZOLAM (ALPRAZOLAM) [Concomitant]
  3. DIAZEPAM (DIAZEPAM) [Concomitant]
  4. SYNTHROID [Concomitant]
  5. TOPROL XL [Concomitant]
  6. ZANTAC [Concomitant]
  7. PREMARIN [Concomitant]
  8. DOMPERIDONE (DOMPERIDONE) [Concomitant]

REACTIONS (9)
  - Acute respiratory failure [None]
  - Vagus nerve disorder [None]
  - Somnolence [None]
  - Impaired gastric emptying [None]
  - Appetite disorder [None]
  - Stupor [None]
  - Fatigue [None]
  - Gastrointestinal hypomotility [None]
  - Hypophagia [None]
